FAERS Safety Report 5279302-5 (Version None)
Quarter: 2007Q1

REPORT INFORMATION
  Report Type: 
  Country: None (occurrence: None)
  Receive Date: 20070328
  Receipt Date: 20060523
  Transmission Date: 20070707
  Serious: No
  Sender: FDA-Public Use
  Company Number: US-AMGEN-KDL180515

PATIENT
  Sex: Female

DRUGS (4)
  1. NEULASTA [Suspect]
     Indication: CHEMOTHERAPY
     Dates: start: 20060301
  2. TAXOTERE [Concomitant]
  3. ADRIAMYCIN PFS [Concomitant]
  4. GEMCITABINE [Concomitant]

REACTIONS (7)
  - CULTURE URINE POSITIVE [None]
  - DIZZINESS [None]
  - FATIGUE [None]
  - PRODUCTIVE COUGH [None]
  - URINARY TRACT PAIN [None]
  - URINE ANALYSIS ABNORMAL [None]
  - WHITE BLOOD CELL COUNT INCREASED [None]
